FAERS Safety Report 9154737 (Version 1)
Quarter: 2013Q1

REPORT INFORMATION
  Report Type: Spontaneous
  Country: US (occurrence: None)
  Receive Date: 20130305
  Receipt Date: 20130305
  Transmission Date: 20140127
  Serious: Yes (Life-Threatening)
  Sender: FDA-Public Use
  Company Number: None

PATIENT
  Sex: Female
  Weight: 91.63 kg

DRUGS (2)
  1. BENLYSTA [Suspect]
     Indication: SYSTEMIC LUPUS ERYTHEMATOSUS
     Dosage: 900MG - IV
     Route: 042
     Dates: start: 20130211
  2. BENLYSTA [Suspect]

REACTIONS (3)
  - Nausea [None]
  - Chills [None]
  - Dyspnoea [None]
